FAERS Safety Report 7623800-3 (Version None)
Quarter: 2011Q3

REPORT INFORMATION
  Report Type: 
  Country: None (occurrence: None)
  Receive Date: 20110719
  Receipt Date: 20110719
  Transmission Date: 20111222
  Serious: Yes (Other)
  Sender: FDA-Public Use
  Company Number: None

PATIENT
  Sex: Female
  Weight: 54.4316 kg

DRUGS (3)
  1. AZITHROMYCIN [Suspect]
     Indication: TOOTH DISORDER
     Dosage: 500MG DAILY BY MOUTH
     Route: 048
     Dates: start: 20100804
  2. AZITHROMYCIN [Suspect]
     Indication: THERAPEUTIC PROCEDURE
     Dosage: 500MG DAILY BY MOUTH
     Route: 048
     Dates: start: 20100804
  3. AZITHROMYCIN [Suspect]
     Indication: PREOPERATIVE CARE
     Dosage: 500MG DAILY BY MOUTH
     Route: 048
     Dates: start: 20100804

REACTIONS (3)
  - RETCHING [None]
  - NAUSEA [None]
  - VOMITING [None]
